FAERS Safety Report 4823715-X (Version None)
Quarter: 2005Q4

REPORT INFORMATION
  Report Type: 
  Country: None (occurrence: None)
  Receive Date: 20051109
  Receipt Date: 20050311
  Transmission Date: 20060501
  Serious: Yes (Hospitalization)
  Sender: FDA-Public Use
  Company Number: NO-ROCHE-398212

PATIENT
  Age: 38 Year
  Sex: Male

DRUGS (1)
  1. LARIAM [Suspect]
     Indication: MALARIA PROPHYLAXIS
     Dosage: TAKEN ON 22 FEB, 01 MAR AND 08 MAR 2005.
     Route: 048
     Dates: start: 20050222, end: 20050308

REACTIONS (8)
  - BALANCE DISORDER [None]
  - DIARRHOEA [None]
  - DIZZINESS [None]
  - HEARING IMPAIRED [None]
  - NAUSEA [None]
  - NYSTAGMUS [None]
  - TINNITUS [None]
  - VERTIGO [None]
